FAERS Safety Report 9248366 (Version 1)
Quarter: 2013Q2

REPORT INFORMATION
  Report Type: Spontaneous
  Country: FR (occurrence: FR)
  Receive Date: 20130423
  Receipt Date: 20130423
  Transmission Date: 20140414
  Serious: Yes (Other)
  Sender: FDA-Public Use
  Company Number: FR-SANOFI-AVENTIS-2013SA038588

PATIENT
  Age: 57 Year
  Sex: Female

DRUGS (5)
  1. OMEPRAZOLE [Suspect]
     Indication: PRODUCT USED FOR UNKNOWN INDICATION
     Route: 065
  2. HYDROXYCHLOROQUINE [Suspect]
     Indication: CUTANEOUS LUPUS ERYTHEMATOSUS
     Route: 065
  3. MYCOPHENOLATE MOFETIL [Suspect]
     Indication: CUTANEOUS LUPUS ERYTHEMATOSUS
     Route: 065
  4. METHOTREXATE [Suspect]
     Indication: CUTANEOUS LUPUS ERYTHEMATOSUS
     Route: 065
  5. PREDNISONE [Suspect]
     Indication: CUTANEOUS LUPUS ERYTHEMATOSUS
     Route: 065

REACTIONS (13)
  - Cutaneous lupus erythematosus [Unknown]
  - Skin lesion [Unknown]
  - Dermatitis psoriasiform [Unknown]
  - Pericarditis [Unknown]
  - Lymphadenopathy [Unknown]
  - Bicytopenia [Unknown]
  - Antinuclear antibody positive [Unknown]
  - Anti-SS-A antibody positive [Unknown]
  - Hypergammaglobulinaemia [Unknown]
  - DNA antibody [Unknown]
  - Scar [Unknown]
  - Pyrexia [Unknown]
  - Drug ineffective [Unknown]
